FAERS Safety Report 10376272 (Version 1)
Quarter: 2014Q3

REPORT INFORMATION
  Report Type: Spontaneous
  Country: BR (occurrence: BR)
  Receive Date: 20140811
  Receipt Date: 20140811
  Transmission Date: 20150326
  Serious: Yes (Other)
  Sender: FDA-Public Use
  Company Number: BR-DSJP-DSU-2014-117853

PATIENT

DRUGS (3)
  1. HIGROTON [Suspect]
     Active Substance: CHLORTHALIDONE
     Indication: BLOOD PRESSURE ABNORMAL
     Dosage: UNK
     Route: 048
  2. LYRICA [Suspect]
     Active Substance: PREGABALIN
     Indication: KNEE OPERATION
     Dosage: 75 UNK, UNK
     Route: 048
     Dates: start: 201405
  3. OLMETEC [Suspect]
     Active Substance: OLMESARTAN MEDOXOMIL
     Indication: BLOOD PRESSURE ABNORMAL
     Dosage: UNK
     Route: 048

REACTIONS (7)
  - Knee operation [Unknown]
  - Nausea [Recovered/Resolved]
  - Dizziness [Recovered/Resolved]
  - Salivary hypersecretion [Recovered/Resolved]
  - Blood pressure diastolic decreased [None]
  - Breast enlargement [Not Recovered/Not Resolved]
  - Drug administration error [Not Recovered/Not Resolved]

NARRATIVE: CASE EVENT DATE: 201405
